FAERS Safety Report 12121814 (Version 2)
Quarter: 2016Q1

REPORT INFORMATION
  Report Type: Spontaneous
  Country: NZ (occurrence: NZ)
  Receive Date: 20160226
  Receipt Date: 20160310
  Transmission Date: 20160526
  Serious: Yes (Hospitalization, Other)
  Sender: FDA-Public Use
  Company Number: PHHY2016NZ023543

PATIENT
  Age: 57 Year
  Sex: Female

DRUGS (4)
  1. CLOZAPINE. [Suspect]
     Active Substance: CLOZAPINE
     Indication: SCHIZOAFFECTIVE DISORDER
     Dosage: 12.5 MG, QD  (TITRATING UP BY 12.5 MG/DAY)
     Route: 065
  2. CLOZAPINE. [Suspect]
     Active Substance: CLOZAPINE
     Dosage: 150 MG, QD
     Route: 065
  3. QUETIAPINE [Concomitant]
     Active Substance: QUETIAPINE
     Indication: SCHIZOAFFECTIVE DISORDER
     Dosage: 200 MG, QD
     Route: 065
  4. CLONAZEPAM. [Concomitant]
     Active Substance: CLONAZEPAM
     Indication: SCHIZOAFFECTIVE DISORDER
     Dosage: 300 MG, QD
     Route: 065

REACTIONS (5)
  - C-reactive protein increased [Recovered/Resolved]
  - Abdominal tenderness [Unknown]
  - Faecaloma [Recovering/Resolving]
  - Antipsychotic drug level increased [Recovered/Resolved]
  - Pyrexia [Recovered/Resolved]
